FAERS Safety Report 13098767 (Version 1)
Quarter: 2017Q1

REPORT INFORMATION
  Report Type: Report from Study
  Country: US (occurrence: US)
  Receive Date: 20170109
  Receipt Date: 20170109
  Transmission Date: 20170428
  Serious: Yes (Other)
  Sender: FDA-Public Use
  Company Number: US-MYLANLABS-2016M1059365

PATIENT

DRUGS (1)
  1. FLUMAZENIL. [Suspect]
     Active Substance: FLUMAZENIL
     Indication: HYPERSOMNIA
     Route: 065

REACTIONS (2)
  - Central nervous system lupus [Unknown]
  - Angiopathy [Unknown]
